FAERS Safety Report 7952415-2 (Version None)
Quarter: 2011Q4

REPORT INFORMATION
  Report Type: 
  Country: None (occurrence: None)
  Receive Date: 20111201
  Receipt Date: 20111028
  Transmission Date: 20120403
  Serious: Yes (Life-Threatening)
  Sender: FDA-Public Use
  Company Number: CA-GLAXOSMITHKLINE-A0950908A

PATIENT
  Sex: Male
  Weight: 81.8 kg

DRUGS (3)
  1. VENTOLIN [Suspect]
     Indication: PULMONARY FUNCTION TEST
     Dosage: 3PUFF SINGLE DOSE
     Route: 065
     Dates: start: 20111104, end: 20111104
  2. ADVAIR DISKUS 100/50 [Concomitant]
     Dosage: 1PUFF TWICE PER DAY
     Route: 065
  3. SINGULAIR [Concomitant]
     Dosage: 10MG PER DAY
     Route: 048

REACTIONS (1)
  - FORCED EXPIRATORY VOLUME DECREASED [None]
